FAERS Safety Report 19752820 (Version 2)
Quarter: 2021Q3

REPORT INFORMATION
  Report Type: Report from Study
  Country: CA (occurrence: CA)
  Receive Date: 20210826
  Receipt Date: 20210910
  Transmission Date: 20211014
  Serious: Yes (Other)
  Sender: FDA-Public Use
  Company Number: NVSC2021CA186307

PATIENT
  Sex: Male

DRUGS (5)
  1. METHOTREXATE. [Suspect]
     Active Substance: METHOTREXATE
     Indication: PRODUCT USED FOR UNKNOWN INDICATION
     Dosage: 25 MG, QW
     Route: 058
     Dates: start: 202008, end: 2021
  2. PROTOPIC [Concomitant]
     Active Substance: TACROLIMUS
     Indication: PRODUCT USED FOR UNKNOWN INDICATION
     Dosage: STRENGTH: 0.1
     Route: 061
  3. METHOTREXATE. [Suspect]
     Active Substance: METHOTREXATE
     Dosage: UNK
     Route: 048
  4. CYCLOSPORINE. [Suspect]
     Active Substance: CYCLOSPORINE
     Indication: PRODUCT USED FOR UNKNOWN INDICATION
     Dosage: 150 MG, BID
     Route: 048
     Dates: start: 202105, end: 202108
  5. DOVOBET [Concomitant]
     Active Substance: BETAMETHASONE\CALCIPOTRIENE
     Indication: PRODUCT USED FOR UNKNOWN INDICATION
     Route: 065

REACTIONS (15)
  - Haemorrhage [Unknown]
  - Gingival hypertrophy [Unknown]
  - Condition aggravated [Unknown]
  - Psoriasis [Unknown]
  - Headache [Unknown]
  - Pain of skin [Unknown]
  - Pruritus [Unknown]
  - Self-consciousness [Unknown]
  - Nausea [Unknown]
  - General physical health deterioration [Unknown]
  - Dyspnoea [Unknown]
  - Libido decreased [Unknown]
  - Fatigue [Unknown]
  - Emotional distress [Unknown]
  - Arthralgia [Unknown]
